FAERS Safety Report 4717076-4 (Version None)
Quarter: 2005Q3

REPORT INFORMATION
  Report Type: 
  Country: None (occurrence: None)
  Receive Date: 20050715
  Receipt Date: 20050331
  Transmission Date: 20060218
  Serious: Yes (Hospitalization)
  Sender: FDA-Public Use
  Company Number: 2005FR-00105

PATIENT
  Age: 45 Year
  Sex: Female

DRUGS (3)
  1. IBUPROFEN [Suspect]
  2. CODEINE [Suspect]
  3. FLUOXETINE [Concomitant]

REACTIONS (7)
  - ASTHENIA [None]
  - DRUG SCREEN POSITIVE [None]
  - HEADACHE [None]
  - HYPOKALAEMIA [None]
  - POISONING DELIBERATE [None]
  - RENAL TUBULAR ACIDOSIS [None]
  - SOMNOLENCE [None]
